FAERS Safety Report 16841005 (Version 4)
Quarter: 2020Q2

REPORT INFORMATION
  Report Type: Spontaneous
  Country: DK (occurrence: DK)
  Receive Date: 20190923
  Receipt Date: 20200407
  Transmission Date: 20200713
  Serious: Yes (Other)
  Sender: FDA-Public Use
  Company Number: DK-MYLANLABS-2019M1069999

PATIENT
  Sex: Female

DRUGS (8)
  1. KLOMIPRAMIN MYLAN 25 MG FILMOVERTRUKNE TABLETTER [Suspect]
     Active Substance: CLOMIPRAMINE
     Indication: DEPRESSION
     Dosage: 50 MILLIGRAM, QD
     Route: 048
  2. VENLAFAXIN [Concomitant]
     Active Substance: VENLAFAXINE HYDROCHLORIDE
     Indication: PRODUCT USED FOR UNKNOWN INDICATION
     Dosage: UNK
  3. NEXIUM [Concomitant]
     Active Substance: ESOMEPRAZOLE MAGNESIUM
     Indication: ABDOMINAL PAIN
     Dosage: 40 MILLIGRAM, QD
  4. KLOMIPRAMIN MYLAN 25 MG FILMOVERTRUKNE TABLETTER [Suspect]
     Active Substance: CLOMIPRAMINE
     Indication: FEAR OF DEATH
     Dosage: 40 MILLIGRAM, QD
     Route: 048
  5. KLOMIPRAMIN MYLAN 25 MG FILMOVERTRUKNE TABLETTER [Suspect]
     Active Substance: CLOMIPRAMINE
     Indication: GENERALISED ANXIETY DISORDER
     Dosage: 25 MILLIGRAM, BID
     Route: 048
     Dates: start: 20190824
  6. NEXIUM [Concomitant]
     Active Substance: ESOMEPRAZOLE MAGNESIUM
     Dosage: 40 MILLIGRAM, BID (WHEN NEEDED)
  7. KLOMIPRAMIN MYLAN 10 MG FILMOVERTRUKNE TABLETTER [Suspect]
     Active Substance: CLOMIPRAMINE
     Indication: ANXIETY
     Dosage: UNK
     Route: 048
     Dates: start: 2017
  8. KLOMIPRAMIN MYLAN 10 MG FILMOVERTRUKNE TABLETTER [Suspect]
     Active Substance: CLOMIPRAMINE
     Indication: DEPRESSION

REACTIONS (8)
  - Gastrooesophageal reflux disease [Not Recovered/Not Resolved]
  - Drug level increased [Unknown]
  - Product availability issue [Not Recovered/Not Resolved]
  - Palpitations [Recovered/Resolved]
  - Gastric ulcer [Not Recovered/Not Resolved]
  - Product dose omission [Not Recovered/Not Resolved]
  - Toxicity to various agents [Unknown]
  - Abdominal pain [Not Recovered/Not Resolved]
